FAERS Safety Report 21842490 (Version 1)
Quarter: 2023Q1

REPORT INFORMATION
  Report Type: Spontaneous
  Country: US (occurrence: None)
  Receive Date: 20230110
  Receipt Date: 20230110
  Transmission Date: 20230417
  Serious: No
  Sender: FDA-Public Use
  Company Number: 2023A002762

PATIENT
  Age: 19636 Day
  Sex: Male
  Weight: 83.9 kg

DRUGS (1)
  1. BYDUREON BCISE [Suspect]
     Active Substance: EXENATIDE
     Indication: Type 2 diabetes mellitus
     Dosage: 2MG/ML ONCE A WEEK
     Route: 058
     Dates: start: 2020

REACTIONS (9)
  - Blood glucose increased [Unknown]
  - Depressed mood [Unknown]
  - Hypoaesthesia [Unknown]
  - Pain in extremity [Unknown]
  - Chest pain [Unknown]
  - Neuropathy peripheral [Unknown]
  - Product dose omission issue [Recovered/Resolved]
  - Intentional product misuse [Unknown]
  - Device defective [Unknown]

NARRATIVE: CASE EVENT DATE: 20230103
